FAERS Safety Report 19956447 (Version 1)
Quarter: 2021Q4

REPORT INFORMATION
  Report Type: Spontaneous
  Country: GB (occurrence: GB)
  Receive Date: 20211014
  Receipt Date: 20211014
  Transmission Date: 20220304
  Serious: Yes (Other)
  Sender: FDA-Public Use
  Company Number: None

PATIENT
  Age: 91 Year
  Sex: Female
  Weight: 52 kg

DRUGS (20)
  1. DOXYCYCLINE [Suspect]
     Active Substance: DOXYCYCLINE
     Indication: Infection
     Dosage: 200 MILLIGRAM DAILY; TAKE TWO NOW, THEN ONE DAILY, 200 MG
     Route: 065
     Dates: start: 20210813, end: 20210813
  2. ASPIRIN [Concomitant]
     Active Substance: ASPIRIN
     Indication: Ill-defined disorder
     Dosage: 1 DOSAGE FORMS DAILY;
     Dates: start: 20200313
  3. BENDROFLUMETHIAZIDE [Concomitant]
     Active Substance: BENDROFLUMETHIAZIDE
     Indication: Ill-defined disorder
     Dosage: 1 DOSAGE FORMS DAILY;  EACH MORNING
     Dates: start: 20210125, end: 20210715
  4. BETAMETHASONE VALERATE [Concomitant]
     Active Substance: BETAMETHASONE VALERATE
     Indication: Ill-defined disorder
     Dosage: APPLY TWICE DAILY
     Dates: start: 20211001
  5. CLARITHROMYCIN [Concomitant]
     Active Substance: CLARITHROMYCIN
     Indication: Ill-defined disorder
     Dosage: 2 DOSAGE FORMS DAILY;  (TO COMPLETE A THREE DAY COURSE)
     Dates: start: 20210906, end: 20210913
  6. CODEINE PHOSPHATE [Concomitant]
     Active Substance: CODEINE PHOSPHATE
     Indication: Ill-defined disorder
     Dosage: ONE OR TWO TO BE TAKEN UPTO FOUR TIMES DAILY
     Dates: start: 20210806, end: 20210813
  7. DERMOL [Concomitant]
     Active Substance: BENZALKONIUM CHLORIDE\CHLORHEXIDINE HYDROCHLORIDE\ISOPROPYL MYRISTATE\PARAFFIN
     Dosage: USE AS DIRECTED
     Dates: start: 20210726, end: 20210727
  8. FUROSEMIDE [Concomitant]
     Active Substance: FUROSEMIDE
     Dosage: 1 DOSAGE FORMS DAILY; EACH MORNING
     Dates: start: 20210820, end: 20210917
  9. FUSIDIC ACID [Concomitant]
     Active Substance: FUSIDIC ACID
     Dosage: 3 DOSAGE FORMS DAILY; APPLY FOR 7 TO 10 DAYS
     Dates: start: 20210726, end: 20210805
  10. GABAPENTIN [Concomitant]
     Active Substance: GABAPENTIN
     Dosage: 3 DOSAGE FORMS DAILY;
     Dates: start: 20210809, end: 20210908
  11. LANSOPRAZOLE [Concomitant]
     Active Substance: LANSOPRAZOLE
     Dosage: 1 DOSAGE FORMS DAILY; TO PROTECT STOMACH WHILST
     Dates: start: 20191216
  12. MORPHINE SULFATE [Concomitant]
     Active Substance: MORPHINE SULFATE
     Dosage: 2.5MLS TO 5MLS UP TO EVERY 4 HOURS AS NEEDED
     Dates: start: 20210820, end: 20210917
  13. ACETAMINOPHEN [Concomitant]
     Active Substance: ACETAMINOPHEN
     Dosage: TAKE 1 OR 2 UP TO 4 TIMES/DAY AS NEEDED
     Dates: start: 20210729
  14. PREDNISOLONE [Concomitant]
     Active Substance: PREDNISOLONE
     Dosage: 4 DOSAGE FORMS DAILY;
     Dates: start: 20190214
  15. PREGABALIN [Concomitant]
     Active Substance: PREGABALIN
     Dosage: 2 DOSAGE FORMS DAILY;
     Dates: start: 20210811, end: 20210908
  16. RAMIPRIL [Concomitant]
     Active Substance: RAMIPRIL
     Dosage: 1 DOSAGE FORMS DAILY;
     Dates: start: 20210715
  17. OLODATEROL HYDROCHLORIDE\TIOTROPIUM BROMIDE MONOHYDRATE [Concomitant]
     Active Substance: OLODATEROL HYDROCHLORIDE\TIOTROPIUM BROMIDE MONOHYDRATE
     Dosage: 2 DOSAGE FORMS DAILY; PUFFS
     Dates: start: 20210524
  18. TIOTROPIUM [Concomitant]
     Active Substance: TIOTROPIUM
     Dosage: 2 DOSAGE FORMS DAILY; PUFFS, THIS IS WITH THE DEVICE, ...
     Dates: start: 20210331
  19. TOLTERODINE TARTRATE [Concomitant]
     Active Substance: TOLTERODINE TARTRATE
     Indication: Bladder disorder
     Dosage: 2 DOSAGE FORMS DAILY;
     Dates: start: 20190214
  20. ZINC [Concomitant]
     Active Substance: ZINC
     Dosage: USE AS DIRECTED
     Dates: start: 20210809, end: 20210906

REACTIONS (2)
  - Vomiting [Recovered/Resolved]
  - Visual impairment [Recovered/Resolved]

NARRATIVE: CASE EVENT DATE: 20210906
